FAERS Safety Report 5289039-4 (Version None)
Quarter: 2007Q2

REPORT INFORMATION
  Report Type: 
  Country: None (occurrence: None)
  Receive Date: 20070405
  Receipt Date: 20070329
  Transmission Date: 20071010
  Serious: Yes (Other)
  Sender: FDA-Public Use
  Company Number: US-PFIZER INC-2007025639

PATIENT
  Sex: Male

DRUGS (2)
  1. GEODON [Suspect]
  2. LITHIUM CARBONATE [Suspect]

REACTIONS (1)
  - BLOOD TRIGLYCERIDES INCREASED [None]
